FAERS Safety Report 7617777-4 (Version None)
Quarter: 2011Q3

REPORT INFORMATION
  Report Type: 
  Country: None (occurrence: None)
  Receive Date: 20110718
  Receipt Date: 20110705
  Transmission Date: 20111222
  Serious: Yes (Life-Threatening, Other)
  Sender: FDA-Public Use
  Company Number: US-BAYER-2011-023843

PATIENT
  Age: 28 Year
  Sex: Female
  Weight: 65.76 kg

DRUGS (3)
  1. VICODIN [Concomitant]
     Indication: PAIN
     Dosage: UNK UNK, PRN
     Dates: start: 20080627
  2. YAZ [Suspect]
     Indication: CONTRACEPTION
     Dosage: UNK
     Route: 048
     Dates: start: 20010101, end: 20080101
  3. YASMIN [Suspect]
     Indication: CONTRACEPTION
     Dosage: UNK
     Route: 048
     Dates: start: 20010101, end: 20080101

REACTIONS (5)
  - INJURY [None]
  - GENERAL PHYSICAL HEALTH DETERIORATION [None]
  - THROMBOSIS [None]
  - GALLBLADDER DISORDER [None]
  - PAIN [None]
